FAERS Safety Report 25740007 (Version 1)
Quarter: 2025Q3

REPORT INFORMATION
  Report Type: Report from Study
  Country: CA (occurrence: CA)
  Receive Date: 20250829
  Receipt Date: 20250829
  Transmission Date: 20251020
  Serious: Yes (Hospitalization)
  Sender: ROCHE
  Company Number: CA-002147023-NVSC2025CA040412

PATIENT
  Age: 70 Year
  Sex: Female

DRUGS (4)
  1. XOLAIR [Suspect]
     Active Substance: OMALIZUMAB
     Indication: Chronic spontaneous urticaria
     Dosage: 300 MG, EVERY 4 WEEKS
     Route: 058
     Dates: start: 20221116
  2. XOLAIR [Suspect]
     Active Substance: OMALIZUMAB
     Route: 065
     Dates: start: 20250207
  3. XOLAIR [Suspect]
     Active Substance: OMALIZUMAB
     Route: 058
  4. IRON [Concomitant]
     Active Substance: IRON

REACTIONS (8)
  - Abdominal discomfort [Unknown]
  - Illness [Unknown]
  - Urticaria [Unknown]
  - Psoriasis [Unknown]
  - Pruritus [Unknown]
  - Sepsis [Unknown]
  - Decreased immune responsiveness [Unknown]
  - Cellulitis [Unknown]
